FAERS Safety Report 9322279 (Version 5)
Quarter: 2013Q3

REPORT INFORMATION
  Report Type: Report from Study
  Country: JP (occurrence: JP)
  Receive Date: 20130531
  Receipt Date: 20130829
  Transmission Date: 20140515
  Serious: Yes (Life-Threatening, Hospitalization)
  Sender: FDA-Public Use
  Company Number: JP-GLAXOSMITHKLINE-B0894332A

PATIENT
  Age: 94 Year
  Sex: Male

DRUGS (9)
  1. REVOLADE [Suspect]
     Indication: IMMUNE THROMBOCYTOPENIC PURPURA
     Dosage: 12.5MG PER DAY
     Route: 048
     Dates: start: 20121125, end: 20130304
  2. PREDONINE [Suspect]
     Indication: IMMUNE THROMBOCYTOPENIC PURPURA
     Dosage: 10MG PER DAY
     Route: 048
     Dates: start: 20121125
  3. PREDONINE [Suspect]
     Indication: IMMUNE THROMBOCYTOPENIC PURPURA
     Dosage: 5MG TWICE PER DAY
     Route: 048
     Dates: start: 20130219, end: 20130312
  4. PREDONINE [Suspect]
     Indication: IMMUNE THROMBOCYTOPENIC PURPURA
     Dosage: 5MG PER DAY
     Route: 048
     Dates: start: 20130313, end: 20130317
  5. PREDONINE [Suspect]
     Indication: IMMUNE THROMBOCYTOPENIC PURPURA
     Dosage: 2.5MG PER DAY
     Route: 048
     Dates: start: 20130318, end: 20130322
  6. ONEALFA [Concomitant]
     Dosage: .5MCG PER DAY
     Route: 048
     Dates: start: 20130219, end: 20130408
  7. TAKEPRON [Concomitant]
     Dosage: 15MG PER DAY
     Route: 048
     Dates: start: 20130219, end: 20130408
  8. BAKTAR [Concomitant]
     Dosage: 1IUAX PER DAY
     Route: 048
     Dates: start: 20130219, end: 20130408
  9. PREDNISOLONE [Concomitant]
     Dosage: 1IUAX PER DAY
     Route: 048
     Dates: start: 20130323, end: 20130402

REACTIONS (2)
  - Pulmonary embolism [Recovering/Resolving]
  - Cholangitis acute [Recovered/Resolved]
